FAERS Safety Report 10474011 (Version 1)
Quarter: 2014Q3

REPORT INFORMATION
  Report Type: Spontaneous
  Country: US (occurrence: RU)
  Receive Date: 20140924
  Receipt Date: 20140924
  Transmission Date: 20150326
  Serious: Yes (Death)
  Sender: FDA-Public Use
  Company Number: RU-FRI-1000070798

PATIENT
  Sex: Male

DRUGS (4)
  1. CARDIAC GLYCOSIDES [Concomitant]
     Active Substance: UNSPECIFIED INGREDIENT
  2. BRONCHIAL SPASMOLYTICS [Concomitant]
  3. CEFTAROLINE FOSAMIL [Suspect]
     Active Substance: CEFTAROLINE FOSAMIL
     Indication: PNEUMONIA
     Dosage: 1200 MG
     Route: 042
     Dates: start: 20140901, end: 20140903
  4. METRONIDAZOLE. [Concomitant]
     Active Substance: METRONIDAZOLE

REACTIONS (1)
  - Acute respiratory failure [Fatal]
